FAERS Safety Report 9867696 (Version 2)
Quarter: 2014Q1

REPORT INFORMATION
  Report Type: Report from Study
  Country: US (occurrence: US)
  Receive Date: 20140204
  Receipt Date: 20140204
  Transmission Date: 20141002
  Serious: Yes (Hospitalization, Other)
  Sender: FDA-Public Use
  Company Number: US-ABBVIE-14P-163-1189266-00

PATIENT
  Age: 52 Year
  Sex: Female

DRUGS (8)
  1. LUPRON DEPOT [Suspect]
     Indication: ENDOMETRIOSIS
     Dates: start: 20131213, end: 20140110
  2. LUPRON DEPOT [Suspect]
     Indication: OVARIAN NEOPLASM
  3. ZOLOFT [Concomitant]
     Indication: DEPRESSION
     Route: 048
  4. AMITRIPTYLINE [Concomitant]
     Indication: NEURALGIA
     Dosage: AT BEDTIME
     Route: 048
  5. OXYCONTIN [Concomitant]
     Indication: PAIN
     Route: 048
  6. PERCOCET [Concomitant]
     Indication: PAIN
     Dosage: 10/325MG
     Route: 048
  7. XANAX [Concomitant]
     Indication: ANXIETY
     Dosage: BY MOUTH
     Route: 048
  8. NORETHINDRONE ACETATE [Concomitant]
     Indication: PRODUCT USED FOR UNKNOWN INDICATION
     Route: 048

REACTIONS (18)
  - Blood pressure increased [Recovered/Resolved]
  - Visual impairment [Recovering/Resolving]
  - Loss of consciousness [Unknown]
  - Abdominal pain [Not Recovered/Not Resolved]
  - Dehydration [Recovered/Resolved]
  - Pelvic pain [Recovering/Resolving]
  - Pain [Not Recovered/Not Resolved]
  - Feeling cold [Recovered/Resolved]
  - Cold sweat [Recovered/Resolved]
  - Tremor [Recovered/Resolved]
  - Thyroid disorder [Unknown]
  - Abdominal pain upper [Recovered/Resolved]
  - Cyst [Not Recovered/Not Resolved]
  - Decreased appetite [Recovering/Resolving]
  - Local swelling [Unknown]
  - Gastrointestinal oedema [Unknown]
  - Weight decreased [Unknown]
  - Insomnia [Unknown]
